FAERS Safety Report 5168013-2 (Version None)
Quarter: 2006Q4

REPORT INFORMATION
  Report Type: 
  Country: None (occurrence: None)
  Receive Date: 20061208
  Receipt Date: 20060210
  Transmission Date: 20070319
  Serious: No
  Sender: FDA-Public Use
  Company Number: US-GLAXOSMITHKLINE-A0593277A

PATIENT
  Age: 83 Year
  Sex: Male

DRUGS (15)
  1. AVANDAMET [Suspect]
     Dosage: 1TAB TWICE PER DAY
     Route: 048
     Dates: start: 20051001
  2. AVANDIA [Suspect]
     Route: 048
     Dates: end: 20060206
  3. FUROSEMIDE [Concomitant]
  4. WARFARIN SODIUM [Concomitant]
  5. PRIMIDONE [Concomitant]
  6. GABAPENTIN [Concomitant]
  7. METFORMIN [Concomitant]
  8. DIGITEK [Concomitant]
  9. TRICOR [Concomitant]
  10. LIPITOR [Concomitant]
  11. GLYBURIDE [Concomitant]
  12. POTASSIUM GLUCONATE TAB [Concomitant]
  13. KLOR-CON [Concomitant]
  14. VITAMIN CAP [Concomitant]
  15. EYE DROPS [Concomitant]
     Route: 047

REACTIONS (8)
  - DYSPNOEA [None]
  - FATIGUE [None]
  - GAIT DISTURBANCE [None]
  - HYPERAESTHESIA [None]
  - PAIN [None]
  - PALPITATIONS [None]
  - SWELLING [None]
  - WEIGHT INCREASED [None]
